FAERS Safety Report 5621841-9 (Version None)
Quarter: 2008Q1

REPORT INFORMATION
  Report Type: 
  Country: None (occurrence: None)
  Receive Date: 20080211
  Receipt Date: 20080201
  Transmission Date: 20080703
  Serious: Yes (Other)
  Sender: FDA-Public Use
  Company Number: BR-BAYER-200811060LA

PATIENT
  Age: 87 Year
  Sex: Male
  Weight: 76 kg

DRUGS (4)
  1. ASPIRIN [Suspect]
     Indication: CARDIAC DISORDER
     Route: 048
     Dates: start: 20071201
  2. MIOBAL [Concomitant]
     Indication: CARDIAC DISORDER
     Route: 048
  3. MICARDIS [Concomitant]
     Indication: CARDIAC DISORDER
     Route: 048
  4. VASLIP [Concomitant]
     Indication: CARDIAC DISORDER
     Route: 048

REACTIONS (3)
  - ANAL HAEMORRHAGE [None]
  - DIARRHOEA [None]
  - FREQUENT BOWEL MOVEMENTS [None]
